FAERS Safety Report 14425639 (Version 1)
Quarter: 2018Q1

REPORT INFORMATION
  Report Type: Spontaneous
  Country: US (occurrence: US)
  Receive Date: 20180123
  Receipt Date: 20180123
  Transmission Date: 20180509
  Serious: Yes (Other)
  Sender: FDA-Public Use
  Company Number: US-BAYER-2018-011735

PATIENT
  Age: 88 Year
  Sex: Male

DRUGS (4)
  1. CLARITIN [Suspect]
     Active Substance: LORATADINE
     Indication: COUGH
  2. CLARITIN [Suspect]
     Active Substance: LORATADINE
     Indication: SECRETION DISCHARGE
     Dosage: 1 DF, QD
     Route: 048
     Dates: start: 201801, end: 201801
  3. ALKA-SELTZER PLUS SEVERE COUGH MUCUS AND CONGESTION LIQUID GELS [Suspect]
     Active Substance: ACETAMINOPHEN\DEXTROMETHORPHAN HYDROBROMIDE\GUAIFENESIN\PHENYLEPHRINE HYDROCHLORIDE
     Indication: COUGH
     Dosage: 2 DF, QD
     Route: 048
     Dates: start: 20180115, end: 20180115
  4. CLARITIN [Suspect]
     Active Substance: LORATADINE
     Indication: PARANASAL SINUS HYPERSECRETION

REACTIONS (5)
  - Choking [Recovered/Resolved]
  - Foreign body in respiratory tract [Recovered/Resolved]
  - Off label use [Unknown]
  - Product use in unapproved indication [Unknown]
  - Regurgitation [Recovered/Resolved]

NARRATIVE: CASE EVENT DATE: 201801
